FAERS Safety Report 9444022 (Version 2)
Quarter: 2013Q3

REPORT INFORMATION
  Report Type: Spontaneous
  Country: CN (occurrence: CN)
  Receive Date: 20130807
  Receipt Date: 20130814
  Transmission Date: 20140515
  Serious: Yes (Death, Other)
  Sender: FDA-Public Use
  Company Number: CN-009507513-1308CHN001479

PATIENT
  Age: 77 Year
  Sex: Male
  Weight: 60 kg

DRUGS (3)
  1. ZOCOR [Suspect]
     Indication: HYPERLIPIDAEMIA
     Dosage: 20 MG, QD
     Route: 048
     Dates: start: 20120919, end: 20121019
  2. ZOCOR [Suspect]
     Indication: CORONARY ARTERY DISEASE
  3. ZOCOR [Suspect]
     Indication: CARDIAC FAILURE

REACTIONS (2)
  - Death [Fatal]
  - Alanine aminotransferase increased [Unknown]
